FAERS Safety Report 5271599-0 (Version None)
Quarter: 2007Q1

REPORT INFORMATION
  Report Type: 
  Country: None (occurrence: None)
  Receive Date: 20070316
  Receipt Date: 20070312
  Transmission Date: 20070707
  Serious: Yes (Death, Hospitalization)
  Sender: FDA-Public Use
  Company Number: 163-21880-06120146

PATIENT
  Age: 70 Year
  Sex: Male

DRUGS (8)
  1. REVLIMID [Suspect]
     Indication: MULTIPLE MYELOMA
     Dosage: 25 MG, DAILY FOR 21 DAYS OF 28 DAYS,, ORAL
     Route: 048
     Dates: start: 20060809, end: 20060901
  2. LORTAB [Concomitant]
  3. OXYCONTIN [Concomitant]
  4. SENOKOT [Concomitant]
  5. COUMADIN [Concomitant]
  6. MIRALAX [Concomitant]
  7. PROTONIX [Concomitant]
  8. MYLANTA (MYLANTA) [Concomitant]

REACTIONS (4)
  - DISEASE PROGRESSION [None]
  - MULTIPLE MYELOMA [None]
  - PNEUMONIA [None]
  - RESPIRATORY FAILURE [None]
